FAERS Safety Report 16022328 (Version 1)
Quarter: 2019Q1

REPORT INFORMATION
  Report Type: Spontaneous
  Country: US (occurrence: US)
  Receive Date: 20190204
  Receipt Date: 20190204
  Transmission Date: 20190418
  Serious: Yes (Hospitalization)
  Sender: FDA-Public Use
  Company Number: None

PATIENT
  Age: 54 Year
  Sex: Female

DRUGS (15)
  1. BENLYSTA [Suspect]
     Active Substance: BELIMUMAB
     Indication: SYSTEMIC LUPUS ERYTHEMATOSUS
     Route: 058
     Dates: start: 20190201
  2. QVAR [Concomitant]
     Active Substance: BECLOMETHASONE DIPROPIONATE
  3. IPRATROPIUM POW BROMIDE [Concomitant]
  4. PREDNISONE 20MG [Concomitant]
     Active Substance: PREDNISONE
  5. FLONASE SENS SUS 27.MCG, [Concomitant]
  6. B-12 SUB 500MCG [Concomitant]
  7. METOPROLOL TAR 100 MG [Concomitant]
  8. POTASSIUM GRA IODIDE [Concomitant]
  9. CELLEPT 250 MG [Concomitant]
     Dates: start: 20180131
  10. D-3 GUMMY CHEW 400 UNIT [Concomitant]
  11. VENTOLIN HFA [Concomitant]
     Active Substance: ALBUTEROL SULFATE
  12. SUMATRIPTAN 50 MG [Concomitant]
  13. ALENDRONATE 10 MG TAB [Concomitant]
  14. SYMBICORT AER 160-4.5 [Concomitant]
  15. PANTOPRAZOLE 40 MG [Concomitant]
     Active Substance: PANTOPRAZOLE SODIUM

REACTIONS (2)
  - Surgery [None]
  - Symptom recurrence [None]
